FAERS Safety Report 12169030 (Version 1)
Quarter: 2016Q1

REPORT INFORMATION
  Report Type: Spontaneous
  Country: IT (occurrence: DE)
  Receive Date: 20160310
  Receipt Date: 20160310
  Transmission Date: 20160526
  Serious: Yes (Congenital Anomaly, Other)
  Sender: FDA-Public Use
  Company Number: DE-FRI-1000082940

PATIENT
  Age: 1 Day
  Sex: Male

DRUGS (4)
  1. DOPEGYT [Suspect]
     Active Substance: METHYLDOPA
     Route: 064
  2. FOLVERLAN [Concomitant]
     Active Substance: FOLIC ACID
     Indication: PROPHYLAXIS OF NEURAL TUBE DEFECT
     Dosage: 0.4 MG
     Route: 064
     Dates: start: 20150128, end: 20150130
  3. NEBIVOLOL. [Suspect]
     Active Substance: NEBIVOLOL
     Route: 064
  4. METOPROLOL. [Suspect]
     Active Substance: METOPROLOL
     Route: 064

REACTIONS (5)
  - Aneurysm [Unknown]
  - Hypospadias [Not Recovered/Not Resolved]
  - Hypoglycaemia [Recovered/Resolved]
  - Foetal exposure during pregnancy [Recovered/Resolved]
  - Small for dates baby [Unknown]

NARRATIVE: CASE EVENT DATE: 20150907
